FAERS Safety Report 8079596-7 (Version None)
Quarter: 2012Q1

REPORT INFORMATION
  Report Type: 
  Country: None (occurrence: None)
  Receive Date: 20120128
  Receipt Date: 20110830
  Transmission Date: 20120608
  Serious: No
  Sender: FDA-Public Use
  Company Number: US-ABBOTT-11P-163-0850401-00

PATIENT
  Sex: Female

DRUGS (12)
  1. HUMIRA [Suspect]
     Indication: CROHN'S DISEASE
     Dosage: EVERY OTHER WEEK, AFTER LOADING DOSES
     Route: 058
     Dates: start: 20110728
  2. PAROXETINE [Concomitant]
     Indication: NERVOUS SYSTEM DISORDER
     Dosage: ONE DAILY
  3. DIPHENOXYLATE-ATROP [Concomitant]
     Indication: DIARRHOEA
  4. NEXIUM [Concomitant]
     Indication: DYSPEPSIA
  5. ROPINIROLE [Concomitant]
     Indication: PAIN IN EXTREMITY
     Dosage: TWICE DAILY
  6. FERROUS SULFATE TAB [Concomitant]
     Indication: MINERAL SUPPLEMENTATION
     Dosage: ONE DAILY
  7. EXFORGE [Concomitant]
     Indication: HYPERTENSION
  8. ESTRADIOL [Concomitant]
     Indication: HOT FLUSH
     Dosage: ONE DAILY
  9. HYDROCHLOROTHIAZIDE [Concomitant]
     Indication: HYPERTENSION
     Dosage: ONE DAILY
  10. DICLOFENAC [Concomitant]
     Indication: PRODUCT USED FOR UNKNOWN INDICATION
  11. LEVOTHYROXINE SODIUM [Concomitant]
     Indication: HYPOTHYROIDISM
     Dosage: DAILY
  12. VITAMIN TAB [Concomitant]
     Indication: PRODUCT USED FOR UNKNOWN INDICATION
     Dosage: ONE DAILY

REACTIONS (1)
  - ABDOMINAL PAIN [None]
